FAERS Safety Report 9290832 (Version 1)
Quarter: 2013Q2

REPORT INFORMATION
  Report Type: Spontaneous
  Country: US (occurrence: US)
  Receive Date: 20130515
  Receipt Date: 20130515
  Transmission Date: 20140414
  Serious: No
  Sender: FDA-Public Use
  Company Number: US-PFIZER INC-2013146533

PATIENT
  Age: 61 Year
  Sex: Female

DRUGS (1)
  1. INLYTA [Suspect]
     Indication: RENAL CANCER
     Dosage: 5 MG, 2X/DAY
     Dates: start: 20130326

REACTIONS (7)
  - Fatigue [Unknown]
  - Insomnia [Unknown]
  - Restlessness [Unknown]
  - Decreased appetite [Unknown]
  - Nausea [Unknown]
  - Dysphonia [Unknown]
  - Headache [Unknown]
